FAERS Safety Report 4541573-8 (Version None)
Quarter: 2004Q4

REPORT INFORMATION
  Report Type: 
  Country: None (occurrence: None)
  Receive Date: 20041227
  Receipt Date: 20041214
  Transmission Date: 20050328
  Serious: Yes (Other)
  Sender: FDA-Public Use
  Company Number: 2004113939

PATIENT
  Age: 84 Year
  Sex: Male

DRUGS (2)
  1. TOLTERODINE TARTRATE [Suspect]
     Indication: BLADDER DISORDER
     Dosage: (2 MG), ORAL
     Route: 048
  2. ALL OTHER THERAPEUTIC PRODUCTS (ALL OTHER THERAPEUTIC PRODUCTS) [Suspect]
     Indication: BLADDER DISORDER
     Dosage: ORAL

REACTIONS (1)
  - ANGLE CLOSURE GLAUCOMA [None]
